FAERS Safety Report 5620863-1 (Version None)
Quarter: 2008Q1

REPORT INFORMATION
  Report Type: 
  Country: None (occurrence: None)
  Receive Date: 20080208
  Receipt Date: 20080128
  Transmission Date: 20080703
  Serious: Yes (Other)
  Sender: FDA-Public Use
  Company Number: US-PFIZER INC-2008009496

PATIENT
  Sex: Female
  Weight: 68 kg

DRUGS (5)
  1. CHANTIX [Suspect]
     Indication: SMOKING CESSATION THERAPY
  2. CONTRACEPTIVE, UNSPECIFIED [Concomitant]
  3. VITAMIN B-12 [Concomitant]
  4. FISH OIL [Concomitant]
  5. TPN [Concomitant]

REACTIONS (2)
  - DIZZINESS [None]
  - PERFORMANCE STATUS DECREASED [None]
